FAERS Safety Report 10751461 (Version 1)
Quarter: 2015Q1

REPORT INFORMATION
  Report Type: Spontaneous
  Country: FR (occurrence: None)
  Receive Date: 20150128
  Receipt Date: 20150128
  Transmission Date: 20150721
  Serious: Yes (Life-Threatening)
  Sender: FDA-Public Use
  Company Number: FK201500327

PATIENT
  Age: 27 Year
  Sex: Male

DRUGS (3)
  1. CELOCURINE [Suspect]
     Active Substance: SUCCINYLCHOLINE CHLORIDE
     Indication: INDUCTION OF ANAESTHESIA
     Route: 042
     Dates: start: 20141211, end: 20141211
  2. SUFENTANYL [Suspect]
     Active Substance: SUFENTANIL
     Indication: INDUCTION OF ANAESTHESIA
     Route: 042
     Dates: start: 20141211, end: 20141211
  3. PROPOFOL. [Suspect]
     Active Substance: PROPOFOL
     Indication: INDUCTION OF ANAESTHESIA
     Route: 042
     Dates: start: 20141211, end: 20141211

REACTIONS (4)
  - Bronchospasm [None]
  - Oxygen saturation decreased [None]
  - Anaphylactic shock [None]
  - Blood pressure decreased [None]

NARRATIVE: CASE EVENT DATE: 20141211
